FAERS Safety Report 5626589-2 (Version None)
Quarter: 2008Q1

REPORT INFORMATION
  Report Type: 
  Country: None (occurrence: None)
  Receive Date: 20080214
  Receipt Date: 20080125
  Transmission Date: 20080703
  Serious: Yes (Hospitalization)
  Sender: FDA-Public Use
  Company Number: US-BAXTER-2008BH000801

PATIENT
  Age: 53 Year
  Sex: Female
  Weight: 52 kg

DRUGS (7)
  1. HEPARIN SODIUM [Suspect]
     Indication: PROPHYLAXIS
     Route: 033
     Dates: start: 20031001, end: 20080123
  2. DIANEAL [Concomitant]
     Indication: RENAL FAILURE
     Dosage: DOSE UNIT:UNKNOWN
     Route: 033
  3. LISINOPRIL [Concomitant]
     Indication: BLOOD PRESSURE
     Route: 048
  4. LOVASTATIN [Concomitant]
     Indication: BLOOD CHOLESTEROL
     Dosage: DOSE UNIT:UNKNOWN
     Route: 048
  5. OMEPRAZOLE [Concomitant]
     Dosage: DOSE UNIT:UNKNOWN
     Route: 048
  6. CALCITRIOL [Concomitant]
     Indication: HYPERSENSITIVITY
     Dosage: DOSE UNIT:UNKNOWN
     Route: 048
  7. FEXOFENADINE [Concomitant]
     Indication: HYPERSENSITIVITY
     Dosage: DOSE UNIT:UNKNOWN
     Route: 048

REACTIONS (11)
  - ASTHENIA [None]
  - BLOOD PRESSURE DECREASED [None]
  - BLOOD PRESSURE INCREASED [None]
  - DEHYDRATION [None]
  - DYSPNOEA [None]
  - HEART RATE INCREASED [None]
  - NAUSEA [None]
  - PERITONITIS [None]
  - TENSION [None]
  - TOXICOLOGIC TEST ABNORMAL [None]
  - VOMITING [None]
